APPROVED DRUG PRODUCT: ROCKLATAN
Active Ingredient: LATANOPROST; NETARSUDIL DIMESYLATE
Strength: 0.005%;EQ 0.02% BASE
Dosage Form/Route: SOLUTION/DROPS;OPHTHALMIC
Application: N208259 | Product #001
Applicant: ALCON LABORATORIES INC
Approved: Mar 12, 2019 | RLD: Yes | RS: Yes | Type: RX

PATENTS:
Patent 9993470 | Expires: Mar 14, 2034
Patent 9931336 | Expires: Mar 14, 2034
Patent 10174017 | Expires: Jan 27, 2030
Patent 9096569 | Expires: Jul 11, 2026
Patent 8450344 | Expires: Jul 11, 2026
Patent 10882840 | Expires: Jul 11, 2026
Patent 10532993 | Expires: Jul 11, 2026
Patent 10588901 | Expires: Mar 14, 2034
Patent 11618748 | Expires: Jan 27, 2030
Patent 11020385 | Expires: Mar 14, 2034
Patent 8394826 | Expires: Nov 10, 2030
Patent 10654844 | Expires: Jan 27, 2030
Patent 11028081 | Expires: Jan 27, 2030
Patent 11021456 | Expires: Jul 11, 2026
Patent 11185538 | Expires: Mar 14, 2034
Patent 11197853 | Expires: Mar 14, 2034
Patent 9415043 | Expires: Mar 14, 2034